FAERS Safety Report 21370201 (Version 7)
Quarter: 2022Q4

REPORT INFORMATION
  Report Type: Spontaneous
  Country: US (occurrence: US)
  Receive Date: 20220923
  Receipt Date: 20221025
  Transmission Date: 20230113
  Serious: Yes (Hospitalization)
  Sender: FDA-Public Use
  Company Number: US-JNJFOC-20220943736

PATIENT
  Age: 70 Year
  Sex: Female
  Weight: 96.4 kg

DRUGS (6)
  1. OPSUMIT [Suspect]
     Active Substance: MACITENTAN
     Indication: Product used for unknown indication
     Route: 048
  2. VELETRI [Suspect]
     Active Substance: EPOPROSTENOL
     Indication: Pulmonary arterial hypertension
     Route: 042
  3. VELETRI [Suspect]
     Active Substance: EPOPROSTENOL
     Route: 042
  4. TORSEMIDE [Suspect]
     Active Substance: TORSEMIDE
     Indication: Product used for unknown indication
     Route: 065
  5. AMBRISENTAN [Suspect]
     Active Substance: AMBRISENTAN
     Indication: Product used for unknown indication
     Route: 065
  6. TADALAFIL [Concomitant]
     Active Substance: TADALAFIL

REACTIONS (9)
  - Hospitalisation [Unknown]
  - Syncope [Unknown]
  - Vomiting [Unknown]
  - Urinary incontinence [Unknown]
  - Loss of consciousness [Unknown]
  - Decreased appetite [Unknown]
  - Headache [Unknown]
  - Pain in jaw [Unknown]
  - Fluid retention [Unknown]

NARRATIVE: CASE EVENT DATE: 20220925
